FAERS Safety Report 21988067 (Version 2)
Quarter: 2023Q2

REPORT INFORMATION
  Report Type: Spontaneous
  Country: JP (occurrence: JP)
  Receive Date: 20230214
  Receipt Date: 20230515
  Transmission Date: 20230722
  Serious: Yes (Hospitalization, Other)
  Sender: FDA-Public Use
  Company Number: JP-BRISTOL-MYERS SQUIBB COMPANY-2023-018346

PATIENT
  Age: 8 Decade
  Sex: Female

DRUGS (2)
  1. YERVOY [Suspect]
     Active Substance: IPILIMUMAB
     Indication: Malignant melanoma
  2. OPDIVO [Suspect]
     Active Substance: NIVOLUMAB
     Indication: Malignant melanoma
     Dosage: 12 TIMES

REACTIONS (6)
  - Neurodermatitis [Recovering/Resolving]
  - Vomiting [Recovering/Resolving]
  - Immune-mediated enterocolitis [Recovered/Resolved]
  - Metastasis [Unknown]
  - Pyrexia [Unknown]
  - Malaise [Unknown]
